FAERS Safety Report 10003737 (Version 1)
Quarter: 2014Q1

REPORT INFORMATION
  Report Type: Spontaneous
  Country: US (occurrence: US)
  Receive Date: 20140312
  Receipt Date: 20140312
  Transmission Date: 20141002
  Serious: No
  Sender: FDA-Public Use
  Company Number: US-ABBVIE-13P-163-1115509-00

PATIENT
  Sex: Female
  Weight: 104.42 kg

DRUGS (2)
  1. DEPAKOTE [Suspect]
     Indication: EPILEPSY
     Dates: start: 1980
  2. DEPAKOTE [Suspect]
     Indication: BIPOLAR DISORDER

REACTIONS (3)
  - Hair disorder [Unknown]
  - Osteoporosis [Not Recovered/Not Resolved]
  - Alopecia [Recovered/Resolved]
